FAERS Safety Report 9380943 (Version 1)
Quarter: 2013Q3

REPORT INFORMATION
  Report Type: Spontaneous
  Country: DE (occurrence: DE)
  Receive Date: 20130703
  Receipt Date: 20130703
  Transmission Date: 20140515
  Serious: Yes (Death, Other)
  Sender: FDA-Public Use
  Company Number: DE-ROCHE-1243440

PATIENT
  Sex: Female

DRUGS (5)
  1. HERCEPTIN [Suspect]
     Indication: NEOPLASM MALIGNANT
     Route: 065
     Dates: start: 2004
  2. HERCEPTIN [Suspect]
     Route: 065
     Dates: start: 2005
  3. HERCEPTIN [Suspect]
     Route: 065
     Dates: start: 2006
  4. HERCEPTIN [Suspect]
     Route: 065
     Dates: start: 2006
  5. VINORELBINE [Concomitant]
     Indication: NEOPLASM MALIGNANT
     Route: 065
     Dates: end: 2006

REACTIONS (4)
  - Malignant neoplasm progression [Fatal]
  - Cardiac failure [Unknown]
  - Pleural effusion [Unknown]
  - Cardiopulmonary failure [Unknown]
